FAERS Safety Report 8246397 (Version 4)
Quarter: 2014Q1

REPORT INFORMATION
  Report Type: Spontaneous
  Country: US (occurrence: US)
  Receive Date: 20111116
  Receipt Date: 20140124
  Transmission Date: 20141002
  Serious: Yes (Hospitalization, Other)
  Sender: FDA-Public Use
  Company Number: US-US-EMD SERONO, INC.-7094721

PATIENT
  Age: 63 Year
  Sex: Female

DRUGS (6)
  1. REBIF [Suspect]
     Indication: MULTIPLE SCLEROSIS
     Route: 058
     Dates: start: 20041209
  2. DIOVAN/HCT [Concomitant]
     Indication: HYPERTENSION
     Dosage: 320/12.5 MG
  3. COUMADIN [Concomitant]
     Indication: PHLEBITIS
  4. OMEPRAZOLE [Concomitant]
     Indication: GASTROOESOPHAGEAL REFLUX DISEASE
  5. ZOLOFT [Concomitant]
     Indication: DEPRESSION
  6. ALLEGRA [Concomitant]
     Indication: MULTIPLE ALLERGIES

REACTIONS (6)
  - Sepsis [Recovered/Resolved]
  - Bladder dysfunction [Recovered/Resolved]
  - Umbilical hernia [Recovered/Resolved]
  - Bladder disorder [Unknown]
  - Cystitis [Recovered/Resolved]
  - Application site pain [Not Recovered/Not Resolved]
